FAERS Safety Report 8285686-6 (Version None)
Quarter: 2012Q2

REPORT INFORMATION
  Report Type: 
  Country: None (occurrence: None)
  Receive Date: 20120413
  Receipt Date: 20120330
  Transmission Date: 20120825
  Serious: Yes (Other)
  Sender: FDA-Public Use
  Company Number: JP-BAXTER-2012BAX001867

PATIENT

DRUGS (1)
  1. ADVATE [Suspect]
     Route: 042

REACTIONS (1)
  - FACTOR VIII INHIBITION [None]
